FAERS Safety Report 18380028 (Version 1)
Quarter: 2020Q4

REPORT INFORMATION
  Report Type: Spontaneous
  Country: US (occurrence: US)
  Receive Date: 20201014
  Receipt Date: 20201014
  Transmission Date: 20210114
  Serious: Yes (Death, Other)
  Sender: FDA-Public Use
  Company Number: US-ABBVIE-20K-163-3607230-00

PATIENT
  Age: 78 Year
  Sex: Male
  Weight: 53.57 kg

DRUGS (1)
  1. IMBRUVICA [Suspect]
     Active Substance: IBRUTINIB
     Indication: CHRONIC LYMPHOCYTIC LEUKAEMIA
     Route: 065
     Dates: start: 201812

REACTIONS (4)
  - Lung neoplasm malignant [Fatal]
  - Chronic lymphocytic leukaemia [Fatal]
  - Dyspnoea [Unknown]
  - Sepsis [Unknown]

NARRATIVE: CASE EVENT DATE: 20181217
